FAERS Safety Report 10615292 (Version 1)
Quarter: 2014Q4

REPORT INFORMATION
  Report Type: Spontaneous
  Country: US (occurrence: None)
  Receive Date: 20141125
  Receipt Date: 20141125
  Transmission Date: 20150529
  Serious: No
  Sender: FDA-Public Use
  Company Number: None

PATIENT
  Age: 46 Year
  Sex: Female

DRUGS (1)
  1. ENBREL [Suspect]
     Active Substance: ETANERCEPT
     Indication: RHEUMATOID ARTHRITIS
     Dosage: 50 MG, ONCE WEEKLY, SUBCUTANEOUSLY
     Route: 058
     Dates: start: 20140910

REACTIONS (3)
  - Pain [None]
  - Dry skin [None]
  - Arthralgia [None]

NARRATIVE: CASE EVENT DATE: 20141124
